FAERS Safety Report 6685434-7 (Version None)
Quarter: 2010Q2

REPORT INFORMATION
  Report Type: 
  Country: None (occurrence: None)
  Receive Date: 20100419
  Receipt Date: 20100412
  Transmission Date: 20101027
  Serious: Yes (Hospitalization, Other)
  Sender: FDA-Public Use
  Company Number: US-ASTRAZENECA-2007UW01969

PATIENT
  Age: 11422 Day
  Sex: Male
  Weight: 103 kg

DRUGS (10)
  1. SEROQUEL [Suspect]
     Indication: BIPOLAR DISORDER
     Dosage: 25-300MG
     Route: 048
     Dates: start: 20010101
  2. SEROQUEL [Suspect]
     Indication: SCHIZOPHRENIA
     Dosage: 25-300MG
     Route: 048
     Dates: start: 20010101
  3. SEROQUEL [Suspect]
     Dosage: 25-900 MG DAILY
     Route: 048
     Dates: start: 20020916
  4. SEROQUEL [Suspect]
     Dosage: 25-900 MG DAILY
     Route: 048
     Dates: start: 20020916
  5. ABILIFY [Concomitant]
     Indication: PSYCHOTIC DISORDER
     Dosage: 5-15 MG
     Dates: start: 20060716, end: 20061115
  6. ABILIFY [Concomitant]
     Dosage: 10-20 MG DAILY
     Dates: start: 20060828
  7. CELEX [Concomitant]
     Dates: start: 20010101
  8. LAMICTAL [Concomitant]
     Indication: INSOMNIA
     Dosage: 50-200 MG DAILY
     Route: 048
     Dates: start: 20020826
  9. LAMICTAL [Concomitant]
     Indication: AFFECTIVE DISORDER
     Dosage: 50-200 MG DAILY
     Route: 048
     Dates: start: 20020826
  10. CELEXA [Concomitant]
     Dosage: 20 MG DAILY, 40 MG DAILY
     Route: 048
     Dates: start: 20020826

REACTIONS (3)
  - ALCOHOLIC PANCREATITIS [None]
  - DIABETES MELLITUS [None]
  - PANCREATITIS [None]
